FAERS Safety Report 11222058 (Version 5)
Quarter: 2016Q2

REPORT INFORMATION
  Report Type: Report from Study
  Country: US (occurrence: US)
  Receive Date: 20150626
  Receipt Date: 20160526
  Transmission Date: 20160815
  Serious: Yes (Hospitalization, Other)
  Sender: FDA-Public Use
  Company Number: US-ACTELION-A-NJ2015-119748

PATIENT
  Age: 70 Year
  Sex: Female

DRUGS (2)
  1. MACITENTAN [Suspect]
     Active Substance: MACITENTAN
     Indication: PULMONARY ARTERIAL HYPERTENSION
     Dosage: 10 MG, UNK
     Route: 048
     Dates: start: 20150327, end: 20150519
  2. SILDENAFIL. [Concomitant]
     Active Substance: SILDENAFIL

REACTIONS (9)
  - Nausea [Unknown]
  - Transfusion [Unknown]
  - Peripheral swelling [Unknown]
  - Gastrointestinal haemorrhage [Recovered/Resolved]
  - Haemoglobin decreased [Recovered/Resolved]
  - Asthenia [Recovered/Resolved]
  - Oedema [Unknown]
  - Anaemia [Recovered/Resolved]
  - Internal haemorrhage [Unknown]

NARRATIVE: CASE EVENT DATE: 20150519
